FAERS Safety Report 14726757 (Version 10)
Quarter: 2023Q4

REPORT INFORMATION
  Report Type: Report from Study
  Country: DE (occurrence: DE)
  Receive Date: 20180406
  Receipt Date: 20231005
  Transmission Date: 20240109
  Serious: Yes (Hospitalization, Other)
  Sender: FDA-Public Use
  Company Number: PHHY2018DE058976

PATIENT
  Age: 51 Year
  Sex: Female
  Weight: 99 kg

DRUGS (17)
  1. COSENTYX [Suspect]
     Active Substance: SECUKINUMAB
     Indication: Psoriasis
     Dosage: 300 MG, QMO (PRE-FILLED PEN)
     Route: 058
     Dates: start: 20150603, end: 20150630
  2. COSENTYX [Suspect]
     Active Substance: SECUKINUMAB
     Dosage: 300 MG (PRE-FILLED PEN)
     Route: 065
     Dates: start: 20150701, end: 20150922
  3. COSENTYX [Suspect]
     Active Substance: SECUKINUMAB
     Dosage: 300 MG (PRE-FILLED PEN)
     Route: 065
     Dates: start: 20150923, end: 20160103
  4. COSENTYX [Suspect]
     Active Substance: SECUKINUMAB
     Dosage: 300 MG (PRE-FILLED SYRINGE)
     Route: 065
     Dates: start: 20160104, end: 20160119
  5. COSENTYX [Suspect]
     Active Substance: SECUKINUMAB
     Dosage: 300 MG (PRE-FILLED PEN)
     Route: 065
     Dates: start: 20160120, end: 20160216
  6. COSENTYX [Suspect]
     Active Substance: SECUKINUMAB
     Dosage: 300 MG (PRE-FILLED PEN)
     Route: 065
     Dates: start: 20160217, end: 20210915
  7. COSENTYX [Suspect]
     Active Substance: SECUKINUMAB
     Dosage: 300 MG (PRE-FILLED PEN)
     Route: 065
     Dates: start: 20210916
  8. METFORMIN HYDROCHLORIDE\SITAGLIPTIN PHOSPHATE [Suspect]
     Active Substance: METFORMIN HYDROCHLORIDE\SITAGLIPTIN PHOSPHATE
     Indication: Product used for unknown indication
     Dosage: 1 DOSAGE FORM, BID (1000 MG METFORMIN AND 50 MG SITAGLIPTIN)
     Route: 065
  9. METFORMIN HYDROCHLORIDE\SITAGLIPTIN PHOSPHATE [Suspect]
     Active Substance: METFORMIN HYDROCHLORIDE\SITAGLIPTIN PHOSPHATE
     Dosage: 1000 MG, QD
     Route: 065
  10. AMLODIPINE BESYLATE\HYDROCHLOROTHIAZIDE\OLMESARTAN MEDOXOMIL [Suspect]
     Active Substance: AMLODIPINE BESYLATE\HYDROCHLOROTHIAZIDE\OLMESARTAN MEDOXOMIL
     Indication: Product used for unknown indication
     Dosage: 1 DOSAGE FORM, QD
     Route: 065
  11. AMLODIPINE BESYLATE\HYDROCHLOROTHIAZIDE\OLMESARTAN MEDOXOMIL [Suspect]
     Active Substance: AMLODIPINE BESYLATE\HYDROCHLOROTHIAZIDE\OLMESARTAN MEDOXOMIL
     Dosage: 13.87 MG, QD
     Route: 065
  12. AMLODIPINE BESYLATE\HYDROCHLOROTHIAZIDE\OLMESARTAN MEDOXOMIL [Suspect]
     Active Substance: AMLODIPINE BESYLATE\HYDROCHLOROTHIAZIDE\OLMESARTAN MEDOXOMIL
     Dosage: 12.5 MG, QD
     Route: 065
  13. PRAVASTATIN SODIUM [Suspect]
     Active Substance: PRAVASTATIN SODIUM
     Indication: Product used for unknown indication
     Dosage: 1 DOSAGE FORM, QD
     Route: 065
  14. MOXONIDINE [Concomitant]
     Active Substance: MOXONIDINE
     Indication: Hypertension
     Dosage: 0.2 MG, QD
     Route: 048
  15. AMLODIPINE BESYLATE\OLMESARTAN MEDOXOMIL [Concomitant]
     Active Substance: AMLODIPINE BESYLATE\OLMESARTAN MEDOXOMIL
     Indication: Type 2 diabetes mellitus
     Dosage: 40 MG
     Route: 048
  16. SITAGLIPTIN [Concomitant]
     Active Substance: SITAGLIPTIN
     Indication: Type 2 diabetes mellitus
     Dosage: 1 DOSAGE FORM
     Route: 048
  17. PRAVASTATIN SODIUM [Concomitant]
     Active Substance: PRAVASTATIN SODIUM
     Indication: Type 2 diabetes mellitus
     Dosage: 40 MG, QD
     Route: 065

REACTIONS (13)
  - IIIrd nerve paralysis [Recovered/Resolved]
  - Diplopia [Recovered/Resolved]
  - Eye movement disorder [Unknown]
  - Visual acuity reduced [Recovered/Resolved]
  - Visual field defect [Recovered/Resolved]
  - Urinary tract infection [Unknown]
  - Carotid artery stenosis [Unknown]
  - Glycosylated haemoglobin increased [Unknown]
  - Oedema mucosal [Unknown]
  - Thyroid mass [Unknown]
  - Blister [Unknown]
  - Blood triglycerides increased [Unknown]
  - Osteochondrosis [Unknown]

NARRATIVE: CASE EVENT DATE: 20180224
